FAERS Safety Report 6904846-7 (Version None)
Quarter: 2010Q3

REPORT INFORMATION
  Report Type: 
  Country: None (occurrence: None)
  Receive Date: 20100804
  Receipt Date: 20090722
  Transmission Date: 20110219
  Serious: No
  Sender: FDA-Public Use
  Company Number: US-PFIZER INC-2009221513

PATIENT

DRUGS (1)
  1. LYRICA [Suspect]

REACTIONS (3)
  - FEELING DRUNK [None]
  - GAIT DISTURBANCE [None]
  - JOINT SWELLING [None]
